FAERS Safety Report 4723536-2 (Version None)
Quarter: 2005Q3

REPORT INFORMATION
  Report Type: 
  Country: None (occurrence: None)
  Receive Date: 20050720
  Receipt Date: 20050720
  Transmission Date: 20060218
  Serious: Yes (Hospitalization)
  Sender: FDA-Public Use
  Company Number: None

PATIENT
  Age: 48 Year
  Sex: Female
  Weight: 102.5129 kg

DRUGS (16)
  1. LISINOPRIL [Suspect]
     Indication: HYPERTENSION
     Dosage: 10 MG QD -ORAL
     Route: 048
     Dates: start: 20030201, end: 20040201
  2. BUPROPION HCL [Concomitant]
  3. CITALOPRAM [Concomitant]
  4. CYCLOBENZ [Concomitant]
  5. DICYLONEX [Concomitant]
  6. CONJ. ESTROGEN [Concomitant]
  7. ETOLOTIC [Concomitant]
  8. FOLIC ACID [Concomitant]
  9. GEMFIBROZIL [Concomitant]
  10. GLIPIZIDE [Concomitant]
  11. VICODIN [Concomitant]
  12. IBUPROFEN [Concomitant]
  13. LOPERAMIDE HCL [Concomitant]
  14. MECLIZINE [Concomitant]
  15. MERCAPTOPURINE [Concomitant]
  16. METFORMIN [Concomitant]

REACTIONS (1)
  - SWOLLEN TONGUE [None]
